FAERS Safety Report 17749813 (Version 4)
Quarter: 2020Q2

REPORT INFORMATION
  Report Type: Spontaneous
  Country: US (occurrence: US)
  Receive Date: 20200506
  Receipt Date: 20200629
  Transmission Date: 20200714
  Serious: No
  Sender: FDA-Public Use
  Company Number: US-ASTRAZENECA-2020SE56604

PATIENT
  Sex: Male
  Weight: 96.6 kg

DRUGS (1)
  1. BYDUREON BCISE [Suspect]
     Active Substance: EXENATIDE
     Indication: BLOOD GLUCOSE ABNORMAL
     Route: 058
     Dates: start: 20181211

REACTIONS (5)
  - Device delivery system issue [Unknown]
  - Device issue [Unknown]
  - Injection site indentation [Unknown]
  - Drug dose omission by device [Unknown]
  - Injection site extravasation [Unknown]
